FAERS Safety Report 9264758 (Version 1)
Quarter: 2013Q2

REPORT INFORMATION
  Report Type: Spontaneous
  Country: US (occurrence: None)
  Receive Date: 20130426
  Receipt Date: 20130426
  Transmission Date: 20140414
  Serious: Yes (Hospitalization, Other)
  Sender: FDA-Public Use
  Company Number: 2013P1004854

PATIENT
  Age: 53 Year
  Sex: Male

DRUGS (5)
  1. DIAZEPAM [Suspect]
     Indication: ANXIETY
     Route: 042
     Dates: start: 20130207, end: 20130207
  2. DIPHENHYDRAMINE [Suspect]
     Route: 042
     Dates: start: 20130207, end: 20130207
  3. LORAZEPAM [Suspect]
     Route: 042
     Dates: start: 20130207, end: 20130207
  4. CARBAMAZEPINE ER [Suspect]
     Dosage: Q12H
     Route: 048
     Dates: start: 20130109, end: 20130111
  5. STUDY DRUG [Suspect]
     Route: 048
     Dates: start: 20130206, end: 20130206

REACTIONS (22)
  - Sensory disturbance [None]
  - Anxiety [None]
  - Blood pressure increased [None]
  - Supraventricular tachycardia [None]
  - Sinus tachycardia [None]
  - Dizziness [None]
  - Nervousness [None]
  - Agitation [None]
  - Irritability [None]
  - Atrioventricular block first degree [None]
  - Delusion [None]
  - Speech disorder [None]
  - Abnormal behaviour [None]
  - Psychotic disorder [None]
  - Hypervigilance [None]
  - Grandiosity [None]
  - Fear [None]
  - Pressure of speech [None]
  - Judgement impaired [None]
  - Cognitive disorder [None]
  - Disturbance in attention [None]
  - Thinking abnormal [None]
